FAERS Safety Report 20246495 (Version 1)
Quarter: 2021Q4

REPORT INFORMATION
  Report Type: Spontaneous
  Country: US (occurrence: None)
  Receive Date: 20211228
  Receipt Date: 20211228
  Transmission Date: 20220303
  Serious: Yes (Other)
  Sender: FDA-Public Use
  Company Number: None

PATIENT
  Age: 57 Year
  Sex: Female

DRUGS (1)
  1. BAMLANIVIMAB\ETESEVIMAB [Suspect]
     Active Substance: BAMLANIVIMAB\ETESEVIMAB
     Indication: COVID-19
     Dosage: OTHER FREQUENCY : ONCE;?
     Route: 041
     Dates: start: 20211222, end: 20211222

REACTIONS (7)
  - Anaphylactic reaction [None]
  - Infusion related reaction [None]
  - Periorbital swelling [None]
  - Dyspnoea [None]
  - Erythema [None]
  - Heart rate decreased [None]
  - Muscle tightness [None]

NARRATIVE: CASE EVENT DATE: 20211222
